FAERS Safety Report 6062984-8 (Version None)
Quarter: 2009Q1

REPORT INFORMATION
  Report Type: 
  Country: None (occurrence: None)
  Receive Date: 20090203
  Receipt Date: 20090123
  Transmission Date: 20090719
  Serious: Yes (Hospitalization)
  Sender: FDA-Public Use
  Company Number: B0555789A

PATIENT
  Age: 35 Year
  Sex: Female

DRUGS (2)
  1. AUGMENTIN '125' [Suspect]
     Indication: PROPHYLAXIS
     Dosage: 2G SINGLE DOSE
     Route: 042
     Dates: start: 20081001, end: 20081001
  2. VOLUVEN [Concomitant]

REACTIONS (8)
  - ANAPHYLACTIC REACTION [None]
  - GENERALISED ERYTHEMA [None]
  - HYPOTENSION [None]
  - MALAISE [None]
  - NAUSEA [None]
  - PAINFUL RESPIRATION [None]
  - THROAT IRRITATION [None]
  - VERTIGO [None]
